FAERS Safety Report 22176991 (Version 5)
Quarter: 2023Q2

REPORT INFORMATION
  Report Type: Report from Study
  Country: US (occurrence: US)
  Receive Date: 20230405
  Receipt Date: 20230627
  Transmission Date: 20230722
  Serious: Yes (Congenital Anomaly, Other)
  Sender: FDA-Public Use
  Company Number: US-ViiV Healthcare Limited-US2023GSK047499

PATIENT

DRUGS (4)
  1. DOLUTEGRAVIR [Suspect]
     Active Substance: DOLUTEGRAVIR
     Indication: HIV infection
     Dosage: 1 DF, QD
     Route: 064
     Dates: start: 20200701
  2. DOLUTEGRAVIR [Suspect]
     Active Substance: DOLUTEGRAVIR
     Dosage: 1 DF, QD
     Route: 064
     Dates: start: 20210913
  3. DESCOVY [Suspect]
     Active Substance: EMTRICITABINE\TENOFOVIR ALAFENAMIDE FUMARATE
     Indication: HIV infection
     Dosage: 1 DF, QD
     Route: 064
     Dates: start: 20200701
  4. DESCOVY [Suspect]
     Active Substance: EMTRICITABINE\TENOFOVIR ALAFENAMIDE FUMARATE
     Dosage: 1 DF, QD
     Route: 064
     Dates: start: 20210913

REACTIONS (21)
  - Right-to-left cardiac shunt [Unknown]
  - Left-to-right cardiac shunt [Unknown]
  - Pyelocaliectasis [Unknown]
  - Ventricular septal defect [Recovered/Resolved]
  - Anomalous pulmonary venous connection [Unknown]
  - Patent ductus arteriosus [Unknown]
  - Congenital great vessel anomaly [Unknown]
  - Ventricular dyssynchrony [Unknown]
  - Abdominal transposition [Unknown]
  - Heterotaxia [Unknown]
  - Laevocardia [Unknown]
  - Hypertrophy [Unknown]
  - Atrial septal defect [Recovered/Resolved]
  - Right ventricular dilatation [Unknown]
  - Systolic dysfunction [Unknown]
  - Right ventricular hypertrophy [Unknown]
  - Ventricular hypertrophy [Unknown]
  - Heart rate irregular [Unknown]
  - Sinus arrhythmia [Unknown]
  - Right atrial dilatation [Unknown]
  - Foetal exposure during pregnancy [Unknown]
